FAERS Safety Report 4634088-X (Version None)
Quarter: 2005Q2

REPORT INFORMATION
  Report Type: 
  Country: None (occurrence: None)
  Receive Date: 20050413
  Receipt Date: 20050404
  Transmission Date: 20051028
  Serious: Yes (Other)
  Sender: FDA-Public Use
  Company Number: US-GLAXOSMITHKLINE-A0552641A

PATIENT
  Age: 47 Year
  Sex: Female

DRUGS (4)
  1. PAXIL CR [Suspect]
     Indication: DEPRESSION
     Dosage: 12.5MG PER DAY
     Route: 048
     Dates: start: 20040601
  2. PAXIL [Suspect]
     Indication: DEPRESSION
     Route: 065
  3. NSAIDS [Concomitant]
  4. LAMICTAL [Concomitant]

REACTIONS (1)
  - DYSLEXIA [None]
